FAERS Safety Report 13276819 (Version 1)
Quarter: 2017Q1

REPORT INFORMATION
  Report Type: Spontaneous
  Country: US (occurrence: US)
  Receive Date: 20170227
  Receipt Date: 20170227
  Transmission Date: 20170428
  Serious: No
  Sender: FDA-Public Use
  Company Number: None

PATIENT
  Sex: Female

DRUGS (1)
  1. HUMIRA [Suspect]
     Active Substance: ADALIMUMAB
     Indication: HIDRADENITIS
     Dosage: 160 MG SQ DAY 1, 80 MG SQ DAY 15, THEN 40 MG QWEEK VARIED SQ
     Route: 058
     Dates: start: 20170203

REACTIONS (1)
  - Diarrhoea [None]
